FAERS Safety Report 6543167-1 (Version None)
Quarter: 2010Q1

REPORT INFORMATION
  Report Type: 
  Country: None (occurrence: None)
  Receive Date: 20100120
  Receipt Date: 20100114
  Transmission Date: 20100710
  Serious: Yes (Other)
  Sender: FDA-Public Use
  Company Number: CHPA2010US01130

PATIENT
  Age: 46 Year
  Sex: Female

DRUGS (2)
  1. THERAFLU COLD AND SORE THROAT (NCH) [Suspect]
     Indication: OROPHARYNGEAL PAIN
     Dosage: 1 DF, ONCE/SINGLE
     Route: 048
  2. ADVIL [Concomitant]
     Dosage: 4 PILLS,UNK
     Route: 048

REACTIONS (7)
  - ANXIETY [None]
  - DIZZINESS [None]
  - HEADACHE [None]
  - HYPOAESTHESIA [None]
  - SPEECH DISORDER [None]
  - TREMOR [None]
  - VISION BLURRED [None]
